FAERS Safety Report 24543877 (Version 2)
Quarter: 2024Q4

REPORT INFORMATION
  Report Type: Spontaneous
  Country: US (occurrence: US)
  Receive Date: 20241024
  Receipt Date: 20241031
  Transmission Date: 20250115
  Serious: No
  Sender: AMGEN
  Company Number: US-AMGEN-USASP2024207900

PATIENT
  Age: 43 Year
  Sex: Male

DRUGS (9)
  1. KRYSTEXXA [Suspect]
     Active Substance: PEGLOTICASE
     Indication: Gouty tophus
     Dosage: 8 MILLIGRAM, Q2WK (BIWEEKLY INFUSION)
     Route: 040
     Dates: start: 20220224
  2. KRYSTEXXA [Suspect]
     Active Substance: PEGLOTICASE
     Dosage: 8 MILLIGRAM, Q2WK (BIWEEKLY INFUSION)
     Route: 040
     Dates: start: 20221201, end: 20221201
  3. MYCOPHENOLIC ACID [Suspect]
     Active Substance: MYCOPHENOLIC ACID
     Indication: Gouty tophus
     Dosage: 500 MILLIGRAM, BID
     Route: 065
  4. MYCOPHENOLIC ACID [Suspect]
     Active Substance: MYCOPHENOLIC ACID
     Dosage: 250 MILLIGRAM, BID
     Route: 065
     Dates: end: 20220825
  5. PREDNISONE [Concomitant]
     Active Substance: PREDNISONE
     Dosage: 10 MILLIGRAM (AS NEEDED)
     Route: 048
  6. AMLODIPINE [Concomitant]
     Active Substance: AMLODIPINE BESYLATE
     Dosage: UNK UNK, QD, 5 MG- 20 MG
     Route: 048
  7. OLMESARTAN [Concomitant]
     Active Substance: OLMESARTAN
     Dosage: UNK UNK, QD, 5 MG- 20 MG
     Route: 048
  8. METOPROLOL [Concomitant]
     Active Substance: METOPROLOL
     Dosage: 25 MILLIGRAM, QD
     Route: 048
  9. SILDENAFIL [Concomitant]
     Active Substance: SILDENAFIL
     Dosage: 100 MILLIGRAM (AS NEEDED)
     Route: 048

REACTIONS (1)
  - Gout [Recovered/Resolved]

NARRATIVE: CASE EVENT DATE: 20220407
